FAERS Safety Report 14872511 (Version 2)
Quarter: 2018Q3

REPORT INFORMATION
  Report Type: Spontaneous
  Country: US (occurrence: US)
  Receive Date: 20180510
  Receipt Date: 20180705
  Transmission Date: 20181010
  Serious: No
  Sender: FDA-Public Use
  Company Number: US-GLENMARK PHARMACEUTICALS-2018GMK034910

PATIENT

DRUGS (1)
  1. ACYCLOVIR OINTMENT USP [Suspect]
     Active Substance: ACYCLOVIR
     Indication: HERPES SIMPLEX
     Dosage: UNK, TID
     Route: 061
     Dates: start: 2018, end: 2018

REACTIONS (2)
  - Herpes simplex [Not Recovered/Not Resolved]
  - Drug effect incomplete [Unknown]
